FAERS Safety Report 19717916 (Version 3)
Quarter: 2021Q3

REPORT INFORMATION
  Report Type: Report from Study
  Country: ES (occurrence: ES)
  Receive Date: 20210818
  Receipt Date: 20210917
  Transmission Date: 20211014
  Serious: Yes (Hospitalization)
  Sender: FDA-Public Use
  Company Number: ES-ASTRAZENECA-2021A676471

PATIENT
  Age: 53 Year
  Sex: Female

DRUGS (10)
  1. 8?CHLORTHEOPHYLLINE/PROMETHAZINE HYDROCHLORIDE/BARBITAL?AMINOPHENAZONE COMPLEX/METAMIZOLE SODIUM/CHL [Concomitant]
     Route: 065
     Dates: start: 20180426
  2. PARACETAMOL [Concomitant]
     Active Substance: ACETAMINOPHEN
     Route: 065
     Dates: start: 20210723
  3. TRAMADOL. [Concomitant]
     Active Substance: TRAMADOL
     Route: 065
     Dates: start: 20210723
  4. FENTANYL TRANSDERMAL SYSTEM [Concomitant]
     Active Substance: FENTANYL
     Route: 065
     Dates: start: 20210727
  5. ONDANSETRON [Concomitant]
     Active Substance: ONDANSETRON
     Route: 065
     Dates: start: 20210803
  6. LACTULOSE. [Concomitant]
     Active Substance: LACTULOSE
     Route: 065
     Dates: start: 20210727
  7. DURVALUMAB. [Suspect]
     Active Substance: DURVALUMAB
     Indication: HEAD AND NECK CANCER
     Dosage: 1500 MG (CONCURRENT PHASE: DAYS ?7 + 22 OR ADJUVANT PHASE: Q4 WEEKLY (6 DOSES))
     Route: 042
     Dates: start: 20210629, end: 20210727
  8. SODIUM BICARBONATE/CALCIUM/CALCIUM CARBONATE [Concomitant]
     Route: 065
     Dates: start: 20190306
  9. METOCLOPRAMIDE. [Concomitant]
     Active Substance: METOCLOPRAMIDE
     Route: 065
     Dates: start: 20210803
  10. LORAZEPAM. [Concomitant]
     Active Substance: LORAZEPAM
     Route: 065
     Dates: start: 20210723

REACTIONS (2)
  - Immune-mediated hepatitis [Unknown]
  - Stomatitis [Unknown]

NARRATIVE: CASE EVENT DATE: 20210810
